FAERS Safety Report 8344300-1 (Version None)
Quarter: 2012Q2

REPORT INFORMATION
  Report Type: 
  Country: None (occurrence: None)
  Receive Date: 20120508
  Receipt Date: 20081118
  Transmission Date: 20120825
  Serious: Yes (Other)
  Sender: FDA-Public Use
  Company Number: US-TEVA-US024935

PATIENT
  Sex: Male

DRUGS (3)
  1. TREANDA [Suspect]
     Indication: CHRONIC LYMPHOCYTIC LEUKAEMIA
     Dosage: 90 MG/M2;
     Route: 041
     Dates: start: 20080801, end: 20080801
  2. VITAMIN [Concomitant]
  3. RITUXAN [Concomitant]
     Indication: CHRONIC LYMPHOCYTIC LEUKAEMIA
     Dates: start: 20080101, end: 20080101

REACTIONS (1)
  - THROMBOCYTOPENIA [None]
